FAERS Safety Report 23128523 (Version 2)
Quarter: 2023Q4

REPORT INFORMATION
  Report Type: Spontaneous
  Country: US (occurrence: US)
  Receive Date: 20231031
  Receipt Date: 20231204
  Transmission Date: 20240109
  Serious: Yes (Other)
  Sender: FDA-Public Use
  Company Number: US-SA-SAC20231027001562

PATIENT
  Age: 64 Year
  Sex: Male

DRUGS (1)
  1. REZUROCK [Suspect]
     Active Substance: BELUMOSUDIL
     Indication: Acute myeloid leukaemia
     Dosage: 200 MG, BID
     Route: 048
     Dates: start: 20230803

REACTIONS (4)
  - Type 2 diabetes mellitus [Unknown]
  - Malaise [Unknown]
  - Product use in unapproved indication [Unknown]
  - Inappropriate schedule of product administration [Unknown]

NARRATIVE: CASE EVENT DATE: 20230101
